FAERS Safety Report 4407437-5 (Version None)
Quarter: 2004Q3

REPORT INFORMATION
  Report Type: 
  Country: None (occurrence: None)
  Receive Date: 20040726
  Receipt Date: 20040713
  Transmission Date: 20050211
  Serious: Yes (Other)
  Sender: FDA-Public Use
  Company Number: 200412311JP

PATIENT
  Sex: 0

DRUGS (1)
  1. GLIPIZIDE [Suspect]
     Route: 048

REACTIONS (1)
  - BLOOD POTASSIUM DECREASED [None]
